FAERS Safety Report 9882519 (Version 11)
Quarter: 2015Q4

REPORT INFORMATION
  Report Type: Report from Study
  Country: US (occurrence: US)
  Receive Date: 20140207
  Receipt Date: 20151027
  Transmission Date: 20160305
  Serious: Yes (Other)
  Sender: FDA-Public Use
  Company Number: US-SA-2014SA006082

PATIENT
  Age: 58 Year
  Sex: Female

DRUGS (2)
  1. AUBAGIO [Suspect]
     Active Substance: TERIFLUNOMIDE
     Indication: RELAPSING-REMITTING MULTIPLE SCLEROSIS
     Route: 048
     Dates: start: 20140105
  2. AMPYRA [Concomitant]
     Active Substance: DALFAMPRIDINE

REACTIONS (25)
  - Gait disturbance [Recovering/Resolving]
  - Fatigue [Unknown]
  - Frustration [Unknown]
  - Contusion [Unknown]
  - Abdominal pain upper [Recovered/Resolved]
  - Sleep disorder [Not Recovered/Not Resolved]
  - Muscular weakness [Unknown]
  - Vertigo [Recovering/Resolving]
  - Alopecia [Unknown]
  - Pain in extremity [Recovering/Resolving]
  - Limb discomfort [Unknown]
  - Flushing [Unknown]
  - Peroneal nerve palsy [Not Recovered/Not Resolved]
  - Diarrhoea [Unknown]
  - Gastrointestinal motility disorder [Recovering/Resolving]
  - Head injury [Unknown]
  - Epistaxis [Unknown]
  - Abdominal pain upper [Recovered/Resolved]
  - Suicidal ideation [Recovered/Resolved]
  - Fall [Unknown]
  - Pyrexia [Unknown]
  - Urinary incontinence [Recovering/Resolving]
  - Confusional state [Unknown]
  - Influenza [Unknown]
  - Unevaluable event [Recovered/Resolved]

NARRATIVE: CASE EVENT DATE: 2014
